FAERS Safety Report 7573589-1 (Version None)
Quarter: 2011Q2

REPORT INFORMATION
  Report Type: 
  Country: None (occurrence: None)
  Receive Date: 20110621
  Receipt Date: 20110608
  Transmission Date: 20111010
  Serious: Yes (Other)
  Sender: FDA-Public Use
  Company Number: COL_09057_2011

PATIENT
  Age: 56 Year
  Sex: Female

DRUGS (3)
  1. COLGATE TOTAL [Suspect]
     Indication: DENTAL PLAQUE
     Dosage: (1 DF 1X, [PEA SIZED AMOUNT] ORAL)
     Route: 048
     Dates: start: 20110604, end: 20110604
  2. COLGATE TOTAL [Suspect]
     Indication: GINGIVITIS
     Dosage: (1 DF 1X, [PEA SIZED AMOUNT] ORAL)
     Route: 048
     Dates: start: 20110604, end: 20110604
  3. NEXIUM [Concomitant]

REACTIONS (5)
  - OEDEMA MOUTH [None]
  - HYPERSENSITIVITY [None]
  - PHARYNGEAL OEDEMA [None]
  - CHEST PAIN [None]
  - SPEECH DISORDER [None]
